FAERS Safety Report 8218691-6 (Version None)
Quarter: 2012Q1

REPORT INFORMATION
  Report Type: 
  Country: None (occurrence: None)
  Receive Date: 20120319
  Receipt Date: 20120307
  Transmission Date: 20120608
  Serious: Yes (Other)
  Sender: FDA-Public Use
  Company Number: PHHY2012DE020590

PATIENT
  Sex: Female
  Weight: 50.975 kg

DRUGS (2)
  1. AREDIA [Suspect]
     Indication: OSTEOPOROSIS
  2. PROLIA [Suspect]
     Indication: OSTEOPOROSIS
     Dosage: 60 MG, EVERY 6 MONTHS SINGLE DOSE
     Dates: start: 20110223, end: 20110913

REACTIONS (2)
  - RAYNAUD'S PHENOMENON [None]
  - SYSTEMIC LUPUS ERYTHEMATOSUS [None]
